FAERS Safety Report 11024291 (Version 1)
Quarter: 2015Q2

REPORT INFORMATION
  Report Type: Spontaneous
  Country: BY (occurrence: BY)
  Receive Date: 20150414
  Receipt Date: 20150414
  Transmission Date: 20150821
  Serious: Yes (Other)
  Sender: FDA-Public Use
  Company Number: BY-CIPLA LTD.-2015BY02805

PATIENT

DRUGS (4)
  1. ZIDOVUDINE. [Suspect]
     Active Substance: ZIDOVUDINE
     Indication: HIV TEST POSITIVE
     Dosage: 300 MG, BID
  2. EFAVIRENZ [Suspect]
     Active Substance: EFAVIRENZ
     Indication: HIV TEST POSITIVE
     Dosage: 300 MG, BID
  3. EFAVIRENZ [Suspect]
     Active Substance: EFAVIRENZ
     Dosage: 600 MG, BID
  4. LAMIVUDINE. [Suspect]
     Active Substance: LAMIVUDINE
     Indication: HIV TEST POSITIVE
     Dosage: 150 MG, BID

REACTIONS (2)
  - Immune reconstitution inflammatory syndrome [Unknown]
  - Cytomegalovirus chorioretinitis [Unknown]
